FAERS Safety Report 7020344-7 (Version None)
Quarter: 2010Q3

REPORT INFORMATION
  Report Type: 
  Country: None (occurrence: None)
  Receive Date: 20100927
  Receipt Date: 20100916
  Transmission Date: 20110219
  Serious: Yes (Hospitalization)
  Sender: FDA-Public Use
  Company Number: 2010US003046

PATIENT
  Age: 45 Year
  Sex: Male
  Weight: 107 kg

DRUGS (13)
  1. PROGRAF [Suspect]
     Indication: HEART TRANSPLANT
     Dosage: 1 MG, BID, ORAL
     Route: 048
     Dates: start: 20081201, end: 20100701
  2. TACROLIMUS [Suspect]
     Indication: HEART TRANSPLANT
     Dates: start: 20100713
  3. CELLCEPT [Concomitant]
  4. BACTRIM [Concomitant]
  5. SYNTHROID [Concomitant]
  6. CELEXA (CELECOXIB) [Concomitant]
  7. PRILOSEC (OMEPRAZOLE) [Concomitant]
  8. PRAVASTATIN [Concomitant]
  9. DOXYCYCLINE [Concomitant]
  10. TOPROL-XL [Concomitant]
  11. AMLODIPINE [Concomitant]
  12. DIOVAN [Concomitant]
  13. FUROSEMIDE [Concomitant]

REACTIONS (4)
  - DEVICE RELATED INFECTION [None]
  - ILEOSTOMY [None]
  - POSTOPERATIVE ILEUS [None]
  - RENAL FAILURE ACUTE [None]
